FAERS Safety Report 9928890 (Version 3)
Quarter: 2014Q2

REPORT INFORMATION
  Report Type: Spontaneous
  Country: US (occurrence: None)
  Receive Date: 20140221
  Receipt Date: 20140617
  Transmission Date: 20141212
  Serious: Yes (Death)
  Sender: FDA-Public Use
  Company Number: HA14-044-AE

PATIENT
  Age: 70 Year
  Sex: Male
  Weight: 111.2 kg

DRUGS (5)
  1. NAPROXEN [Suspect]
     Indication: OSTEOARTHRITIS
     Route: 048
     Dates: start: 20130430
  2. NAPROXEN [Suspect]
     Route: 048
     Dates: start: 20130430
  3. CELECOXIB; IBUPROFEN; PLACEBO [Suspect]
     Indication: OSTEOARTHRITIS
     Route: 048
     Dates: start: 20130430
  4. CELECOXIB; IBUPROFEN; PLACEBO [Suspect]
     Route: 048
     Dates: start: 20130430
  5. ESOMEPRAZOLE (NEXIUM) [Concomitant]

REACTIONS (1)
  - Death [None]
